FAERS Safety Report 23337592 (Version 2)
Quarter: 2024Q1

REPORT INFORMATION
  Report Type: Report from Study
  Country: US (occurrence: US)
  Receive Date: 20231226
  Receipt Date: 20240103
  Transmission Date: 20240410
  Serious: No
  Sender: FDA-Public Use
  Company Number: US-AMGEN-USASP2023227029

PATIENT
  Age: 71 Year
  Sex: Female

DRUGS (5)
  1. AIMOVIG [Suspect]
     Active Substance: ERENUMAB-AOOE
     Indication: Temporomandibular joint syndrome
     Dosage: 140 MILLIGRAM, QMO
     Route: 058
  2. AIMOVIG [Suspect]
     Active Substance: ERENUMAB-AOOE
     Indication: Trigeminal neuralgia
  3. AIMOVIG [Suspect]
     Active Substance: ERENUMAB-AOOE
     Indication: Migraine without aura
  4. Gamma [Concomitant]
     Indication: Product used for unknown indication
     Dosage: UNK
     Route: 065
  5. MORPHINE [Concomitant]
     Active Substance: MORPHINE
     Indication: Product used for unknown indication
     Dosage: UNK
     Route: 065

REACTIONS (3)
  - Pain [Unknown]
  - Sleep disorder due to a general medical condition [Unknown]
  - Speech disorder [Unknown]

NARRATIVE: CASE EVENT DATE: 20231201
